FAERS Safety Report 9950698 (Version 3)
Quarter: 2014Q3

REPORT INFORMATION
  Report Type: Spontaneous
  Country: US (occurrence: US)
  Receive Date: 20140304
  Receipt Date: 20140707
  Transmission Date: 20150326
  Serious: No
  Sender: FDA-Public Use
  Company Number: US-AMGEN-USASP2013073365

PATIENT
  Age: 71 Year
  Sex: Male

DRUGS (1)
  1. ENBREL [Suspect]
     Active Substance: ETANERCEPT
     Indication: PSORIASIS
     Dosage: 50 MG, 2 TIMES/WK
     Route: 065
     Dates: start: 20031015

REACTIONS (3)
  - Weight decreased [Recovered/Resolved]
  - Weight increased [Recovered/Resolved]
  - Red man syndrome [Not Recovered/Not Resolved]

NARRATIVE: CASE EVENT DATE: 2013
